FAERS Safety Report 5658881-X (Version None)
Quarter: 2008Q1

REPORT INFORMATION
  Report Type: 
  Country: None (occurrence: None)
  Receive Date: 20080310
  Receipt Date: 20070430
  Transmission Date: 20080703
  Serious: No
  Sender: FDA-Public Use
  Company Number: US-BAYER-200711332BCC

PATIENT
  Age: 55 Year
  Sex: Male
  Weight: 86 kg

DRUGS (3)
  1. ALEVE [Suspect]
     Indication: SLEEP DISORDER
     Route: 048
  2. THYROXIN [Concomitant]
  3. NASONEX [Concomitant]

REACTIONS (1)
  - DIZZINESS [None]
